FAERS Safety Report 13687862 (Version 1)
Quarter: 2017Q2

REPORT INFORMATION
  Report Type: Report from Study
  Country: CN (occurrence: CN)
  Receive Date: 20170626
  Receipt Date: 20170626
  Transmission Date: 20170830
  Serious: Yes (Other)
  Sender: FDA-Public Use
  Company Number: CN-ROCHE-1953605

PATIENT

DRUGS (2)
  1. ALTEPLASE [Suspect]
     Active Substance: ALTEPLASE
     Indication: ISCHAEMIC STROKE
     Dosage: (10 PERCENT OF THE TOTAL DOSE AS AN INITIAL DOSE AND REMAINING 90 PERCENT ADMINISTERED WITHIN 60 MIN
     Route: 042
  2. ALTEPLASE [Suspect]
     Active Substance: ALTEPLASE
     Dosage: TOTAL DOSE: NOT MORE THAN 30 MG.
     Route: 013

REACTIONS (1)
  - Disability [Unknown]
